FAERS Safety Report 23643365 (Version 2)
Quarter: 2024Q2

REPORT INFORMATION
  Report Type: Spontaneous
  Country: JP (occurrence: JP)
  Receive Date: 20240318
  Receipt Date: 20240412
  Transmission Date: 20240715
  Serious: Yes (Other)
  Sender: FDA-Public Use
  Company Number: JP-PHATHOM PHARMACEUTICALS INC.-2024PHT00130

PATIENT
  Age: 83 Year
  Sex: Male

DRUGS (1)
  1. VONOPRAZAN FUMARATE [Suspect]
     Active Substance: VONOPRAZAN FUMARATE
     Indication: Prophylaxis
     Dosage: UNK
     Route: 048

REACTIONS (2)
  - Rhabdomyolysis [Unknown]
  - Off label use [Unknown]
